FAERS Safety Report 4779874-0 (Version None)
Quarter: 2005Q3

REPORT INFORMATION
  Report Type: 
  Country: None (occurrence: None)
  Receive Date: 20050914
  Receipt Date: 20050425
  Transmission Date: 20060218
  Serious: Yes (Other)
  Sender: FDA-Public Use
  Company Number: 163-20785-05040499

PATIENT
  Age: 61 Year
  Sex: Male
  Weight: 76.2043 kg

DRUGS (2)
  1. THALOMID [Suspect]
     Indication: GLIOBLASTOMA MULTIFORME
     Dosage: 300 MG, AT BEDTIME, ORAL
     Route: 048
     Dates: start: 20050319, end: 20050328
  2. PROCARBAZINE (PROCARBAZINE) (UNKNOWN) [Suspect]
     Indication: GLIOBLASTOMA MULTIFORME
     Dosage: 250MG/M2, DAILY TIMES 5 DAYS, ORAL
     Route: 048
     Dates: start: 20050319, end: 20050323

REACTIONS (1)
  - DEPRESSED LEVEL OF CONSCIOUSNESS [None]
